FAERS Safety Report 18104445 (Version 1)
Quarter: 2020Q3

REPORT INFORMATION
  Report Type: Spontaneous
  Country: US (occurrence: US)
  Receive Date: 20200803
  Receipt Date: 20200803
  Transmission Date: 20201103
  Serious: Yes (Death)
  Sender: FDA-Public Use
  Company Number: None

PATIENT
  Age: 23 Year
  Sex: Male
  Weight: 72 kg

DRUGS (2)
  1. TYLENOL [Suspect]
     Active Substance: ACETAMINOPHEN
  2. ONDANSETRON [Suspect]
     Active Substance: ONDANSETRON
     Indication: NAUSEA
     Dosage: ?          QUANTITY:10 TABLET(S);?
     Dates: start: 20190304, end: 20190304

REACTIONS (2)
  - Left ventricle outflow tract obstruction [None]
  - Hypertension [None]

NARRATIVE: CASE EVENT DATE: 20190304
